APPROVED DRUG PRODUCT: CHILDREN'S CETIRIZINE HYDROCHLORIDE HIVES RELIEF
Active Ingredient: CETIRIZINE HYDROCHLORIDE
Strength: 5MG/5ML
Dosage Form/Route: SOLUTION;ORAL
Application: A090183 | Product #001
Applicant: RANBAXY LABORATORIES LTD
Approved: Apr 24, 2008 | RLD: No | RS: No | Type: DISCN